FAERS Safety Report 6767847-8 (Version None)
Quarter: 2010Q2

REPORT INFORMATION
  Report Type: 
  Country: None (occurrence: None)
  Receive Date: 20100610
  Receipt Date: 20100528
  Transmission Date: 20101027
  Serious: Yes (Hospitalization)
  Sender: FDA-Public Use
  Company Number: DSA_43205_2010

PATIENT
  Sex: Female

DRUGS (1)
  1. ENALAPRIL MALEATE W/HCTZ [Suspect]
     Indication: DRUG USE FOR UNKNOWN INDICATION
     Dosage: (DF ORAL)
     Route: 048

REACTIONS (4)
  - BLOOD POTASSIUM DECREASED [None]
  - HYPONATRAEMIA [None]
  - HYPOTENSION [None]
  - RENAL FAILURE [None]
